FAERS Safety Report 12865548 (Version 1)
Quarter: 2016Q4

REPORT INFORMATION
  Report Type: Spontaneous
  Country: US (occurrence: US)
  Receive Date: 20161020
  Receipt Date: 20161020
  Transmission Date: 20170207
  Serious: No
  Sender: FDA-Public Use
  Company Number: US-SHIRE-US201614813

PATIENT
  Age: 93 Year
  Sex: Female
  Weight: 53.52 kg

DRUGS (2)
  1. AVENOVA [Concomitant]
     Indication: PRODUCT USED FOR UNKNOWN INDICATION
     Dosage: UNK, UNKNOWN; BID SPRAY TO OUTER LID
     Route: 047
     Dates: start: 20161002
  2. XIIDRA [Suspect]
     Active Substance: LIFITEGRAST
     Indication: DRY EYE
     Dosage: 1 GTT, 2X/DAY:BID; REPORTED AS 1 GTT BOTH EYES BID
     Route: 047
     Dates: start: 20161002, end: 20161011

REACTIONS (2)
  - Instillation site pain [Recovered/Resolved]
  - Instillation site irritation [Recovered/Resolved]

NARRATIVE: CASE EVENT DATE: 20161002
